FAERS Safety Report 7555483-5 (Version None)
Quarter: 2011Q2

REPORT INFORMATION
  Report Type: 
  Country: None (occurrence: None)
  Receive Date: 20110617
  Receipt Date: 20110614
  Transmission Date: 20111010
  Serious: Yes (Life-Threatening, Hospitalization)
  Sender: FDA-Public Use
  Company Number: IE-B.I. PHARMACEUTICALS,INC./RIDGEFIELD-2010-UK-01081UK

PATIENT
  Sex: Female
  Weight: 95 kg

DRUGS (5)
  1. GALFER [Concomitant]
     Indication: ANAEMIA
     Dosage: ONCE
     Route: 048
  2. PANTOPRAZOLE [Concomitant]
     Dosage: 40 MG
     Route: 048
  3. PRADAXA [Suspect]
     Indication: KNEE ARTHROPLASTY
     Dosage: 220 MG
     Route: 048
     Dates: start: 20110104, end: 20110107
  4. SENOKOT [Concomitant]
     Indication: CONSTIPATION
     Dosage: 2 ANZ
     Route: 048
  5. INERGU [Concomitant]
     Indication: BLOOD CHOLESTEROL INCREASED
     Dosage: 10 MG
     Route: 048

REACTIONS (1)
  - PULMONARY EMBOLISM [None]
